FAERS Safety Report 6578099-6 (Version None)
Quarter: 2010Q1

REPORT INFORMATION
  Report Type: 
  Country: None (occurrence: None)
  Receive Date: 20100211
  Receipt Date: 20100205
  Transmission Date: 20100710
  Serious: Yes (Other)
  Sender: FDA-Public Use
  Company Number: US-PFIZER INC-2009277164

PATIENT
  Age: 51 Year
  Sex: Female

DRUGS (1)
  1. METHYLPREDNISOLONE ACETATE [Suspect]
     Dosage: 80 MG, UNK
     Route: 014

REACTIONS (1)
  - HERPES SIMPLEX [None]
